FAERS Safety Report 19800533 (Version 1)
Quarter: 2021Q3

REPORT INFORMATION
  Report Type: Report from Study
  Country: None (occurrence: CA)
  Receive Date: 20210908
  Receipt Date: 20210908
  Transmission Date: 20211014
  Serious: Yes (Other)
  Sender: FDA-Public Use
  Company Number: CA-ABBVIE-21K-028-4069440-00

PATIENT
  Age: 57 Year
  Sex: Female

DRUGS (1)
  1. RINVOQ [Suspect]
     Active Substance: UPADACITINIB
     Indication: RHEUMATOID ARTHRITIS
     Route: 058
     Dates: start: 20210714

REACTIONS (7)
  - Pain [Unknown]
  - Gait disturbance [Unknown]
  - Drug ineffective [Unknown]
  - Humerus fracture [Unknown]
  - Fall [Unknown]
  - Joint swelling [Unknown]
  - Balance disorder [Unknown]

NARRATIVE: CASE EVENT DATE: 2021
